FAERS Safety Report 9393250 (Version 2)
Quarter: 2013Q3

REPORT INFORMATION
  Report Type: Spontaneous
  Country: HK (occurrence: HK)
  Receive Date: 20130710
  Receipt Date: 20130718
  Transmission Date: 20140515
  Serious: Yes (Other)
  Sender: FDA-Public Use
  Company Number: HK-PFIZER INC-2013199932

PATIENT
  Age: 57 Year
  Sex: Male

DRUGS (2)
  1. DOXORUBICIN HCL [Suspect]
     Indication: LEUKAEMIA
     Dosage: UNK
  2. CYTARABINE [Suspect]
     Indication: LEUKAEMIA
     Dosage: UNK

REACTIONS (2)
  - Febrile neutropenia [Unknown]
  - Stomatitis [Unknown]
